FAERS Safety Report 5762572-4 (Version None)
Quarter: 2008Q2

REPORT INFORMATION
  Report Type: 
  Country: None (occurrence: None)
  Receive Date: 20080609
  Receipt Date: 20080605
  Transmission Date: 20081010
  Serious: Yes (Life-Threatening, Hospitalization)
  Sender: FDA-Public Use
  Company Number: B0523776A

PATIENT
  Age: 83 Year
  Sex: Female
  Weight: 65 kg

DRUGS (8)
  1. DIGOXIN [Suspect]
     Dosage: 62.5MG PER DAY
     Dates: end: 20080414
  2. RAMIPRIL [Suspect]
     Dosage: 3.75MG PER DAY
     Dates: end: 20080414
  3. BISOPROLOL FUMARATE [Suspect]
     Dosage: 10MG PER DAY
     Dates: end: 20080414
  4. AMILORIDE HYDROCHLORIDE [Suspect]
     Dosage: 10MG PER DAY
     Dates: end: 20080414
  5. SPIRONOLACTONE [Suspect]
     Dosage: 25MG PER DAY
     Dates: start: 20080325, end: 20080414
  6. WARFARIN SODIUM [Concomitant]
     Indication: ATRIAL FIBRILLATION
     Route: 048
     Dates: end: 20080414
  7. GABAPENTIN [Concomitant]
     Dosage: 900MG PER DAY
     Route: 048
     Dates: end: 20080414
  8. BUMETANIDE [Concomitant]
     Dosage: 2MG PER DAY
     Route: 048
     Dates: end: 20080414

REACTIONS (5)
  - ATRIOVENTRICULAR BLOCK COMPLETE [None]
  - BLOOD POTASSIUM INCREASED [None]
  - BLOOD PRESSURE DECREASED [None]
  - RENAL FAILURE ACUTE [None]
  - SYNCOPE [None]
